FAERS Safety Report 4534570-X (Version None)
Quarter: 2004Q4

REPORT INFORMATION
  Report Type: 
  Country: None (occurrence: None)
  Receive Date: 20041214
  Receipt Date: 20040812
  Transmission Date: 20050328
  Serious: No
  Sender: FDA-Public Use
  Company Number: USA040875364

PATIENT
  Age: 41 Year
  Sex: Male
  Weight: 95 kg

DRUGS (2)
  1. CIALIS [Suspect]
     Indication: ERECTILE DYSFUNCTION
     Dosage: 10 MG
     Dates: start: 20040811, end: 20040811
  2. VIAGRA [Concomitant]

REACTIONS (1)
  - DRUG INEFFECTIVE [None]
